FAERS Safety Report 16559646 (Version 1)
Quarter: 2019Q3

REPORT INFORMATION
  Report Type: Spontaneous
  Country: US (occurrence: US)
  Receive Date: 20190711
  Receipt Date: 20190711
  Transmission Date: 20191004
  Serious: No
  Sender: FDA-Public Use
  Company Number: US-PFIZER INC-2019298407

PATIENT
  Age: 58 Year
  Sex: Male
  Weight: 86.18 kg

DRUGS (2)
  1. CELEBREX [Suspect]
     Active Substance: CELECOXIB
     Indication: PAIN
     Dosage: UNK (ON AND OFF OVER TWENTY YEARS);
  2. CELECOXIB. [Suspect]
     Active Substance: CELECOXIB
     Indication: PAIN
     Dosage: 200 MG, ONCE A DAY (ON AND OFF OVER TWENTY YEARS)
     Dates: start: 2004

REACTIONS (1)
  - Therapeutic product effect incomplete [Unknown]
